FAERS Safety Report 9245352 (Version 1)
Quarter: 2013Q2

REPORT INFORMATION
  Report Type: Report from Study
  Country: BR (occurrence: BR)
  Receive Date: 20130422
  Receipt Date: 20130422
  Transmission Date: 20140414
  Serious: Yes (Hospitalization, Other)
  Sender: FDA-Public Use
  Company Number: PHHY2013BR038501

PATIENT
  Age: 66 Year
  Sex: Female
  Weight: 75 kg

DRUGS (3)
  1. TAMOXIFEN CITRATE [Concomitant]
     Dosage: 20 MG, AT NIGHT
     Route: 048
  2. FORASEQ [Suspect]
     Indication: ASTHMA
     Dosage: 1 DF (12/400 MCG), ONCE DAILY
     Dates: start: 20050103
  3. FORASEQ [Suspect]
     Dosage: 1 DF (12/400 MCG), ONCE DAILY

REACTIONS (1)
  - Breast cancer [Recovered/Resolved with Sequelae]
